FAERS Safety Report 23719188 (Version 1)
Quarter: 2024Q2

REPORT INFORMATION
  Report Type: Report from Study
  Country: US (occurrence: US)
  Receive Date: 20240408
  Receipt Date: 20240408
  Transmission Date: 20240716
  Serious: Yes (Hospitalization, Disabling, Other)
  Sender: FDA-Public Use
  Company Number: US-ABBVIE-5703950

PATIENT
  Sex: Female
  Weight: 56 kg

DRUGS (15)
  1. RINVOQ [Suspect]
     Active Substance: UPADACITINIB
     Indication: Rheumatoid arthritis
     Dosage: IN THE EVENING AFTER DINNER,?DURATION TEXT: FOUR YEARS
     Route: 048
     Dates: start: 2020
  2. VITAMIN D3 [Concomitant]
     Active Substance: CHOLECALCIFEROL
     Indication: Vitamin supplementation
  3. MINERALS\VITAMINS [Concomitant]
     Active Substance: MINERALS\VITAMINS
     Indication: Vitamin supplementation
  4. COLLAGEN [Concomitant]
     Active Substance: COLLAGEN
     Indication: Supplementation therapy
  5. METOPROLOL [Concomitant]
     Active Substance: METOPROLOL
     Indication: Heart rate increased
  6. Dulcolax [Concomitant]
     Indication: Faeces hard
  7. BRIMONIDINE TARTRATE [Concomitant]
     Active Substance: BRIMONIDINE TARTRATE
     Indication: Glaucoma
  8. DORZOLOMIDE HYDROCHLORIDE [Concomitant]
     Indication: Glaucoma
  9. MONTELUKAST [Concomitant]
     Active Substance: MONTELUKAST SODIUM
     Indication: Asthma
  10. LUMIGAN [Concomitant]
     Active Substance: BIMATOPROST
     Indication: Glaucoma
  11. MAGNESIUM [Concomitant]
     Active Substance: MAGNESIUM
     Indication: Mineral supplementation
  12. VITAMIN B12 [Concomitant]
     Active Substance: CYANOCOBALAMIN
     Indication: Vitamin supplementation
  13. CALCIUM [Concomitant]
     Active Substance: CALCIUM
     Indication: Mineral supplementation
  14. BACLOFEN [Concomitant]
     Active Substance: BACLOFEN
     Indication: Rheumatoid arthritis
     Dosage: FORM STRENGTH: 20MILLIGRAM
  15. NAPROXEN [Concomitant]
     Active Substance: NAPROXEN
     Indication: Rotator cuff syndrome

REACTIONS (5)
  - Cartilage atrophy [Recovering/Resolving]
  - Mobility decreased [Recovering/Resolving]
  - Arthralgia [Recovering/Resolving]
  - Arthropathy [Recovering/Resolving]
  - Gait disturbance [Unknown]

NARRATIVE: CASE EVENT DATE: 20230101
